FAERS Safety Report 13520114 (Version 1)
Quarter: 2017Q2

REPORT INFORMATION
  Report Type: Spontaneous
  Country: US (occurrence: US)
  Receive Date: 20170506
  Receipt Date: 20170506
  Transmission Date: 20170830
  Serious: No
  Sender: FDA-Public Use
  Company Number: US-MISSION PHARMACAL COMPANY-2020336

PATIENT
  Age: 47 Year
  Sex: Male

DRUGS (2)
  1. CYMBALTA [Concomitant]
     Active Substance: DULOXETINE HYDROCHLORIDE
     Route: 065
  2. THIOLA [Suspect]
     Active Substance: TIOPRONIN
     Indication: CYSTINURIA
     Route: 065
     Dates: start: 20170121

REACTIONS (5)
  - Burning sensation [Unknown]
  - Blood glucose increased [Unknown]
  - Drug ineffective [Unknown]
  - Insomnia [Unknown]
  - Neuropathy peripheral [Unknown]
